FAERS Safety Report 8579192-9 (Version None)
Quarter: 2012Q3

REPORT INFORMATION
  Report Type: 
  Country: None (occurrence: None)
  Receive Date: 20120808
  Receipt Date: 20120806
  Transmission Date: 20120928
  Serious: No
  Sender: FDA-Public Use
  Company Number: US-PFIZER INC-2011163525

PATIENT
  Age: 48 Year
  Sex: Female
  Weight: 64 kg

DRUGS (4)
  1. LYRICA [Suspect]
     Indication: FIBROMYALGIA
     Dosage: 75 MG, 2X/DAY
     Route: 048
     Dates: start: 20110601, end: 20120701
  2. LORCET-HD [Concomitant]
     Dosage: HYDROCODONE BITARTRATE10/ PARACETAMOL650
  3. XANAX [Suspect]
     Dosage: 1 MG, FOUR TO FIVE TIMES A DAY
  4. TOPROL-XL [Concomitant]
     Indication: HYPERTENSION
     Dosage: DAILY

REACTIONS (6)
  - CHEST PAIN [None]
  - COLD SWEAT [None]
  - NIGHT SWEATS [None]
  - HOT FLUSH [None]
  - HEADACHE [None]
  - INCORRECT DOSE ADMINISTERED [None]
